FAERS Safety Report 6422685-0 (Version None)
Quarter: 2009Q4

REPORT INFORMATION
  Report Type: 
  Country: None (occurrence: None)
  Receive Date: 20091102
  Receipt Date: 20091022
  Transmission Date: 20100525
  Serious: Yes (Hospitalization)
  Sender: FDA-Public Use
  Company Number: NO-WYE-G04711509

PATIENT
  Sex: Female

DRUGS (5)
  1. LANSOPRAZOLE [Suspect]
     Route: 048
     Dates: start: 20090701, end: 20090809
  2. NITROGLYCERIN [Concomitant]
     Indication: ANGINA PECTORIS
     Dosage: AS NECESSARY
  3. MONOKET OD [Concomitant]
     Indication: ANGINA PECTORIS
     Route: 048
     Dates: start: 20090701
  4. PERSANTINE [Concomitant]
     Indication: THROMBOSIS PROPHYLAXIS
     Route: 048
     Dates: start: 20090101
  5. ALBYL-E [Concomitant]
     Indication: ANGINA PECTORIS
     Route: 048
     Dates: start: 20090701

REACTIONS (2)
  - AGRANULOCYTOSIS [None]
  - NEUTROPENIA [None]
